FAERS Safety Report 6435999-5 (Version None)
Quarter: 2009Q4

REPORT INFORMATION
  Report Type: 
  Country: None (occurrence: None)
  Receive Date: 20091110
  Receipt Date: 20091110
  Transmission Date: 20100525
  Serious: Yes (Other)
  Sender: FDA-Public Use
  Company Number: None

PATIENT
  Age: 23 Year
  Sex: Female
  Weight: 85.2762 kg

DRUGS (1)
  1. DILVAPROEX 125MG UNKNOWN [Suspect]
     Indication: CONVULSION
     Dosage: 125MG 5AM, 5PM, 6HS PO
     Route: 048
     Dates: start: 20090624, end: 20090709

REACTIONS (2)
  - CONVULSION [None]
  - PRODUCT SUBSTITUTION ISSUE [None]
